FAERS Safety Report 5468522-2 (Version None)
Quarter: 2007Q3

REPORT INFORMATION
  Report Type: 
  Country: None (occurrence: None)
  Receive Date: 20070926
  Receipt Date: 20070816
  Transmission Date: 20080115
  Serious: No
  Sender: FDA-Public Use
  Company Number: US-BRISTOL-MYERS SQUIBB COMPANY-13879531

PATIENT
  Sex: Female
  Weight: 51 kg

DRUGS (2)
  1. ORENCIA [Suspect]
     Indication: RHEUMATOID ARTHRITIS
     Route: 042
  2. LEVOTHYROXINE SODIUM [Concomitant]

REACTIONS (2)
  - ALOPECIA [None]
  - SKIN DISORDER [None]
